FAERS Safety Report 9241972 (Version 2)
Quarter: 2013Q2

REPORT INFORMATION
  Report Type: Report from Study
  Country: MX (occurrence: MX)
  Receive Date: 20130419
  Receipt Date: 20130429
  Transmission Date: 20140414
  Serious: Yes (Disabling)
  Sender: FDA-Public Use
  Company Number: MX-ROCHE-1214136

PATIENT
  Sex: Male

DRUGS (2)
  1. XELODA [Suspect]
     Indication: COLORECTAL CANCER
     Route: 048
     Dates: end: 201303
  2. IRINOTECAN [Suspect]
     Indication: COLORECTAL CANCER
     Route: 042

REACTIONS (9)
  - Infusion site reaction [Recovering/Resolving]
  - Hypotension [Not Recovered/Not Resolved]
  - Asthenia [Not Recovered/Not Resolved]
  - Muscle spasms [Not Recovered/Not Resolved]
  - Stomatitis [Not Recovered/Not Resolved]
  - Oedema [Not Recovered/Not Resolved]
  - Phlebitis [Not Recovered/Not Resolved]
  - Disease progression [Unknown]
  - Alopecia [Not Recovered/Not Resolved]
